FAERS Safety Report 8150865-5 (Version None)
Quarter: 2012Q1

REPORT INFORMATION
  Report Type: 
  Country: None (occurrence: None)
  Receive Date: 20120220
  Receipt Date: 20120206
  Transmission Date: 20120608
  Serious: Yes (Other)
  Sender: FDA-Public Use
  Company Number: PHHY2012NZ011702

PATIENT

DRUGS (1)
  1. NATEGLINIDE [Suspect]
     Dosage: UNK

REACTIONS (1)
  - THROMBOCYTOPENIA [None]
